FAERS Safety Report 11998742 (Version 1)
Quarter: 2016Q1

REPORT INFORMATION
  Report Type: Spontaneous
  Country: US (occurrence: None)
  Receive Date: 20160202
  Receipt Date: 20160202
  Transmission Date: 20160526
  Serious: Yes (Life-Threatening, Hospitalization)
  Sender: FDA-Public Use
  Company Number: None

PATIENT
  Age: 66 Year
  Sex: Male
  Weight: 84.37 kg

DRUGS (4)
  1. CETUXIMAB [Suspect]
     Active Substance: CETUXIMAB
     Indication: TONSIL CANCER
     Route: 042
     Dates: start: 20160118, end: 20160118
  2. DEXAMETHASONE. [Concomitant]
     Active Substance: DEXAMETHASONE
  3. DIPHENHYDRAMINE. [Concomitant]
     Active Substance: DIPHENHYDRAMINE
  4. ERBITUX [Concomitant]
     Active Substance: CETUXIMAB

REACTIONS (2)
  - Unresponsive to stimuli [None]
  - Urinary incontinence [None]

NARRATIVE: CASE EVENT DATE: 20160118
